FAERS Safety Report 5699104-5 (Version None)
Quarter: 2008Q2

REPORT INFORMATION
  Report Type: 
  Country: None (occurrence: None)
  Receive Date: 20080407
  Receipt Date: 20080407
  Transmission Date: 20081010
  Serious: No
  Sender: FDA-Public Use
  Company Number: None

PATIENT
  Sex: Female
  Weight: 64.4108 kg

DRUGS (1)
  1. LIPITOR [Suspect]
     Indication: BLOOD CHOLESTEROL INCREASED
     Dosage: 40MG 1 A DAY PO
     Route: 048
     Dates: start: 20040101, end: 20080131

REACTIONS (3)
  - BURNING SENSATION [None]
  - INSOMNIA [None]
  - OEDEMA PERIPHERAL [None]
